FAERS Safety Report 7513976-0 (Version None)
Quarter: 2011Q2

REPORT INFORMATION
  Report Type: 
  Country: None (occurrence: None)
  Receive Date: 20110531
  Receipt Date: 20110519
  Transmission Date: 20111010
  Serious: Yes (Other)
  Sender: FDA-Public Use
  Company Number: US-UCBSA-023476

PATIENT
  Sex: Male

DRUGS (3)
  1. CIMZIA [Suspect]
     Indication: COLITIS ULCERATIVE
     Dosage: 400MG AT 0, 2 AND 4 WEEKS THEN EVERY FOUR WEEKS
     Route: 058
     Dates: start: 20100318
  2. PREDNISONE [Concomitant]
     Indication: COLITIS ULCERATIVE
     Route: 048
     Dates: start: 20070212
  3. ASACOL [Concomitant]
     Indication: COLITIS ULCERATIVE
     Route: 048
     Dates: start: 20070212

REACTIONS (1)
  - COLON OPERATION [None]
